FAERS Safety Report 25682964 (Version 1)
Quarter: 2025Q3

REPORT INFORMATION
  Report Type: Spontaneous
  Country: EU (occurrence: EU)
  Receive Date: 20250814
  Receipt Date: 20250814
  Transmission Date: 20251020
  Serious: Yes (Other)
  Sender: BAUSCH AND LOMB
  Company Number: None

PATIENT
  Age: 21 Year
  Sex: Female
  Weight: 67.5 kg

DRUGS (1)
  1. HYDROCORTISONE BUTYRATE [Suspect]
     Active Substance: HYDROCORTISONE BUTYRATE
     Indication: Eczema
     Dosage: 3X PER DAY
     Route: 003
     Dates: start: 20000110, end: 20161018

REACTIONS (6)
  - Topical steroid withdrawal reaction [Recovered/Resolved]
  - Infertility female [Recovered/Resolved]
  - Menstruation irregular [Recovered/Resolved]
  - Immune system disorder [Recovered/Resolved]
  - Photosensitivity reaction [Recovered/Resolved]
  - Fatigue [Recovered/Resolved]
